FAERS Safety Report 6219230-1 (Version None)
Quarter: 2009Q2

REPORT INFORMATION
  Report Type: 
  Country: None (occurrence: None)
  Receive Date: 20090605
  Receipt Date: 20090605
  Transmission Date: 20091009
  Serious: No
  Sender: FDA-Public Use
  Company Number: None

PATIENT
  Age: 34 Year
  Sex: Male
  Weight: 83.4619 kg

DRUGS (2)
  1. ABILIFY [Suspect]
  2. RISPERDAL [Suspect]

REACTIONS (9)
  - ANXIETY [None]
  - COORDINATION ABNORMAL [None]
  - DISTURBANCE IN ATTENTION [None]
  - INJURY [None]
  - INSOMNIA [None]
  - JUDGEMENT IMPAIRED [None]
  - RESTLESSNESS [None]
  - SPEECH DISORDER [None]
  - TREMOR [None]
